FAERS Safety Report 5512673-0 (Version None)
Quarter: 2007Q4

REPORT INFORMATION
  Report Type: 
  Country: None (occurrence: None)
  Receive Date: 20071107
  Receipt Date: 20071029
  Transmission Date: 20080405
  Serious: Yes (Disabling)
  Sender: FDA-Public Use
  Company Number: THYR-10494

PATIENT
  Age: 54 Year
  Sex: Female

DRUGS (2)
  1. THYROGEN [Suspect]
     Indication: DIAGNOSTIC PROCEDURE
     Dosage: MG  IM
     Route: 030
     Dates: start: 20070901, end: 20070901
  2. LEVOTHYROXINE SODIUM [Concomitant]

REACTIONS (3)
  - ARTHRALGIA [None]
  - JOINT SWELLING [None]
  - MUSCLE SPASMS [None]
